FAERS Safety Report 7847113-X (Version None)
Quarter: 2011Q4

REPORT INFORMATION
  Report Type: 
  Country: None (occurrence: None)
  Receive Date: 20111025
  Receipt Date: 20111019
  Transmission Date: 20120403
  Serious: Yes (Hospitalization, Disabling)
  Sender: FDA-Public Use
  Company Number: US-MERCK-1108USA03572

PATIENT
  Age: 81 Year
  Sex: Female

DRUGS (5)
  1. CALCIUM (UNSPECIFIED) AND VITAMIN D (UNSPECIFIED) [Concomitant]
     Route: 048
     Dates: start: 19990101
  2. VYTORIN [Concomitant]
     Route: 065
     Dates: start: 19900101
  3. FOSAMAX [Suspect]
     Indication: OSTEOPOROSIS
     Route: 048
     Dates: start: 20020101, end: 20080101
  4. FOSAMAX [Suspect]
     Route: 065
     Dates: start: 19950101, end: 20090101
  5. CARDIZEM [Concomitant]
     Route: 065
     Dates: start: 19900101

REACTIONS (12)
  - FEMUR FRACTURE [None]
  - HYPERTENSION [None]
  - WEIGHT DECREASED [None]
  - ATRIAL FIBRILLATION [None]
  - TOOTH DISORDER [None]
  - TREMOR [None]
  - BLOOD CHOLESTEROL INCREASED [None]
  - HEPATIC CYST [None]
  - OSTEOPENIA [None]
  - CARDIAC DISORDER [None]
  - GASTROOESOPHAGEAL REFLUX DISEASE [None]
  - DENTAL CARIES [None]
